FAERS Safety Report 8980415 (Version 5)
Quarter: 2013Q1

REPORT INFORMATION
  Report Type: Report from Study
  Country: DE (occurrence: DE)
  Receive Date: 20121221
  Receipt Date: 20130319
  Transmission Date: 20140127
  Serious: Yes (Hospitalization)
  Sender: FDA-Public Use
  Company Number: PHHO2012DE018219

PATIENT
  Age: 53 Year
  Sex: Female
  Weight: 53 kg

DRUGS (10)
  1. EVEROLIMUS [Suspect]
     Indication: NEOPLASM
     Dosage: 7.5 MG, QD
     Route: 048
     Dates: start: 20121123, end: 20121217
  2. EVEROLIMUS [Suspect]
     Dosage: 7.5 MG, QD
     Route: 048
     Dates: start: 20121228
  3. SORAFENIB [Suspect]
     Indication: NEOPLASM
     Dosage: 800 MG, QD
     Route: 048
     Dates: start: 20121207, end: 20121217
  4. SORAFENIB [Suspect]
     Dosage: 800 MG, QD
     Route: 048
     Dates: start: 20121228, end: 20130114
  5. DEXAMETHASONE [Suspect]
     Indication: DECREASED APPETITE
     Dosage: 1 MG, QD
     Route: 065
     Dates: start: 20121206
  6. SERTRALINE [Concomitant]
     Indication: DEPRESSION
     Dosage: 50 MG, QD
     Route: 065
     Dates: start: 20121203
  7. ISONIAZID [Concomitant]
     Indication: PAIN
     Dosage: 1000 MG, QW
     Route: 065
  8. NOVALGIN                                /SCH/ [Concomitant]
     Indication: PAIN
     Dosage: 1000 MG, QD4SDO
  9. CODEIN [Concomitant]
     Indication: COUGH
     Dosage: 15DAYS/3XDAILY
  10. MCP [Concomitant]
     Indication: NAUSEA
     Dosage: 30 DRP, QD
     Route: 065
     Dates: start: 20121206

REACTIONS (3)
  - Colitis [Recovered/Resolved]
  - Pancreatitis [Recovered/Resolved]
  - Small intestinal perforation [Recovered/Resolved with Sequelae]
